FAERS Safety Report 18194937 (Version 2)
Quarter: 2020Q4

REPORT INFORMATION
  Report Type: Spontaneous
  Country: HU (occurrence: HU)
  Receive Date: 20200825
  Receipt Date: 20201030
  Transmission Date: 20210113
  Serious: Yes (Other)
  Sender: FDA-Public Use
  Company Number: HU-UCBSA-2020032380

PATIENT
  Age: 0 Year
  Sex: Female
  Weight: 2.12 kg

DRUGS (5)
  1. CLEXANE [Concomitant]
     Active Substance: ENOXAPARIN SODIUM
     Indication: PRODUCT USED FOR UNKNOWN INDICATION
     Dosage: 8000 NE (80 MG)/0,8 ML SC. INJ.) ONCE/DAY
     Route: 064
     Dates: end: 202007
  2. ADALIMUMAB [Concomitant]
     Active Substance: ADALIMUMAB
     Indication: PRODUCT USED FOR UNKNOWN INDICATION
     Dosage: UNK
     Route: 064
     Dates: start: 20131014, end: 2020
  3. CIMZIA [Suspect]
     Active Substance: CERTOLIZUMAB PEGOL
     Dosage: 400 MILLIGRAM
     Route: 063
     Dates: start: 20200611
  4. CIMZIA [Suspect]
     Active Substance: CERTOLIZUMAB PEGOL
     Indication: ANKYLOSING SPONDYLITIS
     Dosage: 400 MILLIGRAM
     Route: 064
     Dates: start: 20200219, end: 20200611
  5. CHLOROQUINE. [Concomitant]
     Active Substance: CHLOROQUINE
     Indication: PRODUCT USED FOR UNKNOWN INDICATION
     Dosage: 250 MILLIGRAM, 4X/DAY (QID)
     Route: 064
     Dates: end: 20200723

REACTIONS (4)
  - Premature baby [Recovered/Resolved]
  - Low birth weight baby [Unknown]
  - Maternal exposure during pregnancy [Unknown]
  - Exposure via breast milk [Unknown]

NARRATIVE: CASE EVENT DATE: 20200219
